FAERS Safety Report 25386021 (Version 1)
Quarter: 2025Q2

REPORT INFORMATION
  Report Type: Spontaneous
  Country: US (occurrence: None)
  Receive Date: 20250530
  Receipt Date: 20250530
  Transmission Date: 20250716
  Serious: Yes (Life-Threatening)
  Sender: FDA-CTU
  Company Number: None

PATIENT
  Age: 16 Year
  Sex: Male
  Weight: 69.3 kg

DRUGS (15)
  1. CEFTRIAXONE [Suspect]
     Active Substance: CEFTRIAXONE
     Indication: Abdominal infection
     Dosage: FREQUENCY : DAILY;?
     Route: 042
     Dates: start: 20250530, end: 20250530
  2. AZITHROMYCIN [Concomitant]
     Active Substance: AZITHROMYCIN
     Dates: start: 20250530
  3. BACLOFEN [Concomitant]
     Active Substance: BACLOFEN
     Dates: start: 20250530
  4. BUDESONIDE [Concomitant]
     Active Substance: BUDESONIDE
     Dates: start: 20250530
  5. CLOBAZAM [Concomitant]
     Active Substance: CLOBAZAM
     Dates: start: 20250530
  6. ESOMEPRAZOLE [Concomitant]
     Active Substance: ESOMEPRAZOLE
     Dates: start: 20250530
  7. HYDROCORTISONE [Concomitant]
     Active Substance: HYDROCORTISONE
     Dates: start: 20250530
  8. LACTULOSE [Concomitant]
     Active Substance: LACTULOSE
     Dates: start: 20250530
  9. LEVETIRACETAM [Concomitant]
     Active Substance: LEVETIRACETAM
     Dates: start: 20250530
  10. ACETAMINOPHEN [Concomitant]
     Active Substance: ACETAMINOPHEN
     Dates: start: 20250530
  11. albuterol-ipratropium nebulized [Concomitant]
     Dates: start: 20250530
  12. LEVOTHYROXINE [Concomitant]
     Active Substance: LEVOTHYROXINE
     Dates: start: 20250530
  13. LINACLOTIDE [Concomitant]
     Active Substance: LINACLOTIDE
     Dates: start: 20250530
  14. PHENOBARBITAL [Concomitant]
     Active Substance: PHENOBARBITAL
     Dates: start: 20250530
  15. SENNA [Concomitant]
     Active Substance: SENNOSIDES
     Dates: start: 20250530

REACTIONS (1)
  - Anaphylactic reaction [None]

NARRATIVE: CASE EVENT DATE: 20250530
